FAERS Safety Report 24031550 (Version 2)
Quarter: 2024Q4

REPORT INFORMATION
  Report Type: Report from Study
  Country: US (occurrence: US)
  Receive Date: 20240629
  Receipt Date: 20241001
  Transmission Date: 20250115
  Serious: Yes (Other)
  Sender: NOVARTIS
  Company Number: US-002147023-NVSC2024US130057

PATIENT
  Age: 75 Year
  Weight: 102.06 kg

DRUGS (3)
  1. ENTRESTO [Suspect]
     Active Substance: SACUBITRIL\VALSARTAN
     Indication: Cardiac disorder
     Dosage: 49 MG, BID
     Route: 048
  2. ENTRESTO [Suspect]
     Active Substance: SACUBITRIL\VALSARTAN
     Indication: Atrial fibrillation
     Dosage: 24-26 MG
     Route: 048
  3. ENTRESTO [Suspect]
     Active Substance: SACUBITRIL\VALSARTAN
     Dosage: 49-51 MG
     Route: 048

REACTIONS (13)
  - Loss of consciousness [Recovering/Resolving]
  - Memory impairment [Recovering/Resolving]
  - Confusional state [Recovering/Resolving]
  - Lymphoedema [Unknown]
  - Dehydration [Unknown]
  - Oedema [Unknown]
  - Blood sodium decreased [Recovering/Resolving]
  - Gait disturbance [Recovering/Resolving]
  - Dysarthria [Recovering/Resolving]
  - Blood pressure abnormal [Recovering/Resolving]
  - Fall [Recovering/Resolving]
  - Peripheral swelling [Unknown]
  - Product use in unapproved indication [Unknown]

NARRATIVE: CASE EVENT DATE: 20240501
